FAERS Safety Report 9434452 (Version 1)
Quarter: 2013Q3

REPORT INFORMATION
  Report Type: Spontaneous
  Country: US (occurrence: None)
  Receive Date: 20130731
  Receipt Date: 20130731
  Transmission Date: 20140515
  Serious: No
  Sender: FDA-Public Use
  Company Number: None

PATIENT
  Sex: Female

DRUGS (2)
  1. TECFIDERA [Suspect]
     Dosage: 120MG BID PO
     Route: 048
     Dates: start: 20130724
  2. TECFIDERA [Suspect]
     Dosage: 240MG  BID  PO
     Route: 048
     Dates: start: 20130724

REACTIONS (1)
  - Adverse drug reaction [None]
